FAERS Safety Report 16541537 (Version 3)
Quarter: 2021Q1

REPORT INFORMATION
  Report Type: Spontaneous
  Country: GR (occurrence: GR)
  Receive Date: 20190708
  Receipt Date: 20210216
  Transmission Date: 20210419
  Serious: Yes (Hospitalization, Other)
  Sender: FDA-Public Use
  Company Number: GR-JNJFOC-20190634546

PATIENT
  Age: 50 Year
  Sex: Male

DRUGS (10)
  1. STELARA [Suspect]
     Active Substance: USTEKINUMAB
     Indication: PSORIASIS
     Route: 058
  2. LAPRAZOL [Concomitant]
     Active Substance: LANSOPRAZOLE
  3. FOLIC ACID. [Concomitant]
     Active Substance: FOLIC ACID
  4. VITAMIN E                          /00110502/ [Concomitant]
  5. ASPRIN [Concomitant]
     Active Substance: ASPIRIN
     Route: 065
  6. STATIN                             /00848101/ [Concomitant]
     Active Substance: SIMVASTATIN
  7. INSULIN [Concomitant]
     Active Substance: INSULIN NOS
     Indication: DIABETES MELLITUS
  8. ANTIVOM                            /00141802/ [Concomitant]
  9. STELARA [Suspect]
     Active Substance: USTEKINUMAB
  10. CARVEDILOL. [Concomitant]
     Active Substance: CARVEDILOL

REACTIONS (2)
  - Peripheral vascular disorder [Recovered/Resolved]
  - Treatment noncompliance [Unknown]

NARRATIVE: CASE EVENT DATE: 20190621
